FAERS Safety Report 24456272 (Version 2)
Quarter: 2024Q4

REPORT INFORMATION
  Report Type: Spontaneous
  Country: CN (occurrence: CN)
  Receive Date: 20241017
  Receipt Date: 20241018
  Transmission Date: 20250115
  Serious: No
  Sender: ROCHE
  Company Number: CN-ROCHE-3499464

PATIENT
  Age: 64 Year
  Sex: Female
  Weight: 49.0 kg

DRUGS (4)
  1. MABTHERA [Suspect]
     Active Substance: RITUXIMAB
     Indication: Dermatomyositis
     Dosage: INJECTION
     Route: 041
     Dates: start: 20240116, end: 20240116
  2. MABTHERA [Suspect]
     Active Substance: RITUXIMAB
     Indication: Interstitial lung disease
  3. SODIUM CHLORIDE [Concomitant]
     Active Substance: SODIUM CHLORIDE
     Indication: Dermatomyositis
     Route: 042
     Dates: start: 20240116, end: 20240116
  4. SODIUM CHLORIDE [Concomitant]
     Active Substance: SODIUM CHLORIDE
     Indication: Interstitial lung disease

REACTIONS (2)
  - Arthralgia [Recovering/Resolving]
  - Off label use [Unknown]

NARRATIVE: CASE EVENT DATE: 20240117
